FAERS Safety Report 12242663 (Version 4)
Quarter: 2016Q2

REPORT INFORMATION
  Report Type: Spontaneous
  Country: US (occurrence: US)
  Receive Date: 20160406
  Receipt Date: 20160623
  Transmission Date: 20160815
  Serious: Yes (Hospitalization, Other)
  Sender: FDA-Public Use
  Company Number: US-PFIZER INC-2016015358

PATIENT
  Age: 66 Year
  Sex: Female
  Weight: 81 kg

DRUGS (42)
  1. CYTOMEL [Concomitant]
     Active Substance: LIOTHYRONINE SODIUM
     Indication: THYROID DISORDER
     Dosage: 5 UG, 1X/DAY
     Dates: start: 2013
  2. TIROSINT [Concomitant]
     Active Substance: LEVOTHYROXINE SODIUM
     Indication: THYROID DISORDER
     Dosage: 65 UG, 1X/DAY
  3. POTASSIUM [Concomitant]
     Active Substance: POTASSIUM
     Dosage: 500 MG, 1X/DAY
     Dates: start: 2009
  4. TIROSINT [Concomitant]
     Active Substance: LEVOTHYROXINE SODIUM
     Indication: AUTOIMMUNE THYROIDITIS
     Dosage: 78 UG, 1X/DAY
  5. LEXAPRO [Concomitant]
     Active Substance: ESCITALOPRAM OXALATE
     Indication: DEPRESSION
     Dosage: 20 MG, 1X/DAY
     Dates: start: 2006
  6. SINGULAIR [Concomitant]
     Active Substance: MONTELUKAST SODIUM
     Indication: ASTHMA
     Dosage: 10 MG, 1X/DAY (9:00 AM)
     Dates: start: 2009
  7. VANTIN [Concomitant]
     Active Substance: CEFPODOXIME PROXETIL
     Indication: PNEUMONIA
     Dosage: 200 MG, 2X/DAY
  8. ACIDOPHILUS [Concomitant]
     Active Substance: LACTOBACILLUS ACIDOPHILUS
     Dosage: 10 MG, 2X/DAY
     Dates: start: 2009
  9. PANTOPRAZOLE [Suspect]
     Active Substance: PANTOPRAZOLE SODIUM
     Indication: HIATUS HERNIA
     Dosage: UNK
     Dates: start: 2013, end: 2013
  10. TRAZODONE [Concomitant]
     Active Substance: TRAZODONE HYDROCHLORIDE
     Indication: SLEEP DISORDER
     Dosage: 100 MG, 1X/DAY (AT BEDTIME)
     Dates: start: 2006
  11. FLEXERIL [Concomitant]
     Active Substance: CYCLOBENZAPRINE HYDROCHLORIDE
     Indication: ARTHRALGIA
     Dosage: UNK
     Dates: start: 2012
  12. VALIUM [Concomitant]
     Active Substance: DIAZEPAM
     Dosage: 10 MG, 1X/DAY (AT BEDTIME)
     Dates: start: 2012
  13. FLONASE [Concomitant]
     Active Substance: FLUTICASONE PROPIONATE
     Dosage: UNK, AS NEEDED
     Route: 045
     Dates: start: 2009
  14. ATERAX [Concomitant]
     Active Substance: HYDROXYZINE HYDROCHLORIDE
     Indication: PRURITUS
     Dosage: 50 MG, AS NEEDED
  15. VITAMIN D [Concomitant]
     Active Substance: CHOLECALCIFEROL
     Dosage: 400 MG, 3X/DAY
     Dates: start: 2012
  16. FISH OIL [Concomitant]
     Active Substance: FISH OIL
     Dosage: 2400 MG, 1X/DAY
     Dates: start: 2012
  17. PANTOPRAZOLE [Suspect]
     Active Substance: PANTOPRAZOLE SODIUM
     Indication: GASTROOESOPHAGEAL REFLUX DISEASE
     Dosage: 40 MG, 2X/DAY
  18. ARTHROTEC [Concomitant]
     Active Substance: DICLOFENAC SODIUM\MISOPROSTOL
     Indication: BACK PAIN
     Dosage: UNK
     Dates: start: 2005
  19. ADVAIR HFA [Concomitant]
     Active Substance: FLUTICASONE PROPIONATE\SALMETEROL XINAFOATE
     Dosage: UNK, 2X/DAY (FLUTICASONE PROPIONATE, SALMETEROL XINAFOATE 100/50ONE PUFF TWO TIMES DAILY)
     Dates: start: 1999
  20. ASPIRIN. [Concomitant]
     Active Substance: ASPIRIN
     Dosage: 325 MG, 1X/DAY
     Dates: start: 2009
  21. ULTRAM [Concomitant]
     Active Substance: TRAMADOL HYDROCHLORIDE
     Indication: HEADACHE
     Dosage: 200 MG, AS NEEDED
     Dates: start: 2006
  22. FLEXERIL [Concomitant]
     Active Substance: CYCLOBENZAPRINE HYDROCHLORIDE
     Indication: MYALGIA
     Dosage: 20 MG, 1X/DAY (AT BEDTIME)
  23. ADVAIR HFA [Concomitant]
     Active Substance: FLUTICASONE PROPIONATE\SALMETEROL XINAFOATE
     Indication: ASTHMA
     Dosage: 1 DF, 2X/DAY
  24. VENTOLIN HFA [Concomitant]
     Active Substance: ALBUTEROL SULFATE
     Indication: ASTHMA
     Dosage: 2 DF, AS NEEDED
     Route: 055
  25. ALLEGRA-D [Concomitant]
     Active Substance: FEXOFENADINE\PSEUDOEPHEDRINE
     Dosage: 1 DF, 2X/DAY
     Dates: start: 2009
  26. ASTEPRO [Concomitant]
     Active Substance: AZELASTINE HYDROCHLORIDE
     Dosage: UNK UNK, AS NEEDED
     Route: 045
     Dates: start: 2009
  27. LIDOCAINE. [Concomitant]
     Active Substance: LIDOCAINE
     Indication: ARTHRALGIA
  28. TYLENOL [Concomitant]
     Active Substance: ACETAMINOPHEN
     Dosage: UNK
     Dates: end: 2014
  29. CALCIUM [Concomitant]
     Active Substance: CALCIUM
     Dosage: 600 MG, 2X/DAY
     Dates: start: 2012
  30. GAMMAGARD [Concomitant]
     Active Substance: HUMAN IMMUNOGLOBULIN G
     Indication: IMMUNODEFICIENCY
     Dosage: EVERY 4 WEEKS
     Route: 042
     Dates: start: 201208
  31. PANTOPRAZOLE [Suspect]
     Active Substance: PANTOPRAZOLE SODIUM
     Indication: GASTROOESOPHAGEAL REFLUX DISEASE
  32. ESCITALOPRAM [Concomitant]
     Active Substance: ESCITALOPRAM OXALATE
     Indication: DEPRESSION
     Dosage: 25 MG, 1X/DAY (9:00 AM)
     Dates: start: 2006
  33. LIDOCAINE. [Concomitant]
     Active Substance: LIDOCAINE
     Indication: BACK PAIN
     Dosage: 2 DF, AS NEEDED
     Route: 003
  34. ARTHROTEC [Concomitant]
     Active Substance: DICLOFENAC SODIUM\MISOPROSTOL
     Indication: PAIN
     Dosage: 1 DF, 2X/DAY (DICLOFENAC SODIUM 75 MG, MISOPROSTOL 200 MCG, ONE IN THE MORNING AND ONE AT NIGHT)
     Route: 048
     Dates: start: 1980
  35. CRESTOR [Concomitant]
     Active Substance: ROSUVASTATIN CALCIUM
     Dosage: 5 MG, 1X/DAY (AT BEDTIME)
     Dates: start: 2006
  36. TIROSINT [Concomitant]
     Active Substance: LEVOTHYROXINE SODIUM
     Dosage: 91 UG, DAILY (91MCG 6 DAYS PER WEEK)
     Dates: start: 2013
  37. TIROSINT [Concomitant]
     Active Substance: LEVOTHYROXINE SODIUM
     Dosage: 78 UG, WEEKLY (78 MCG ONE DAY PER WEEK)
     Dates: start: 2013
  38. CYTOMEL [Concomitant]
     Active Substance: LIOTHYRONINE SODIUM
     Indication: THYROIDITIS
  39. FLEXERIL [Concomitant]
     Active Substance: CYCLOBENZAPRINE HYDROCHLORIDE
     Indication: BACK PAIN
     Dosage: 10 MG, AS NEEDED (AT NIGHT)
     Dates: start: 201304
  40. VANTIN [Concomitant]
     Active Substance: CEFPODOXIME PROXETIL
     Dosage: 400 MG, 2X/DAY (200MG 2 TABLETS TWO TIMES A DAY)
     Dates: start: 2009
  41. TYLENOL [Concomitant]
     Active Substance: ACETAMINOPHEN
     Indication: HEADACHE
     Dosage: 500 MG, 2-3 TIMES A DAY
  42. DOCUSATE SODIUM. [Concomitant]
     Active Substance: DOCUSATE SODIUM
     Indication: FAECES SOFT
     Dosage: 200 MG, 2X/DAY

REACTIONS (3)
  - Vomiting [Recovered/Resolved]
  - Pneumonia aspiration [Recovered/Resolved]
  - Drug ineffective [Unknown]

NARRATIVE: CASE EVENT DATE: 200811
